FAERS Safety Report 9357852 (Version 1)
Quarter: 2013Q2

REPORT INFORMATION
  Report Type: Spontaneous
  Country: FR (occurrence: FR)
  Receive Date: 20130620
  Receipt Date: 20130620
  Transmission Date: 20140414
  Serious: Yes (Hospitalization)
  Sender: FDA-Public Use
  Company Number: FR-ABBOTT-13P-056-1104538-00

PATIENT
  Age: 38 Year
  Sex: Female

DRUGS (4)
  1. NORVIR [Suspect]
     Indication: HIV INFECTION
     Route: 048
     Dates: start: 200809
  2. SUSTIVA [Suspect]
     Indication: HIV INFECTION
     Dates: start: 200809, end: 20130502
  3. REYATAZ [Suspect]
     Indication: HIV INFECTION
     Route: 048
     Dates: start: 200809
  4. VIDEX [Concomitant]
     Indication: HIV INFECTION
     Route: 048
     Dates: start: 200809

REACTIONS (1)
  - Hepatic cirrhosis [Unknown]
